FAERS Safety Report 7274141-8 (Version None)
Quarter: 2011Q1

REPORT INFORMATION
  Report Type: 
  Country: None (occurrence: None)
  Receive Date: 20110204
  Receipt Date: 20110126
  Transmission Date: 20110831
  Serious: No
  Sender: FDA-Public Use
  Company Number: US-BIOGENIDEC-2011BI001857

PATIENT
  Sex: Female

DRUGS (3)
  1. TYSABRI [Suspect]
     Route: 042
     Dates: start: 20101214
  2. TYSABRI [Suspect]
     Indication: MULTIPLE SCLEROSIS
     Route: 042
     Dates: start: 20080908, end: 20100831
  3. TYSABRI [Suspect]
     Route: 042
     Dates: start: 20100928, end: 20101028

REACTIONS (12)
  - DEPRESSION [None]
  - ABNORMAL DREAMS [None]
  - INFLUENZA LIKE ILLNESS [None]
  - SUICIDAL IDEATION [None]
  - NIGHTMARE [None]
  - ABDOMINAL PAIN UPPER [None]
  - MALAISE [None]
  - STRESS [None]
  - ANXIETY [None]
  - PSYCHOTIC DISORDER [None]
  - HEADACHE [None]
  - PYREXIA [None]
